FAERS Safety Report 8264473-9 (Version None)
Quarter: 2012Q2

REPORT INFORMATION
  Report Type: 
  Country: None (occurrence: None)
  Receive Date: 20120406
  Receipt Date: 20120403
  Transmission Date: 20120825
  Serious: No
  Sender: FDA-Public Use
  Company Number: US-PFIZER INC-2012084577

PATIENT
  Sex: Male

DRUGS (1)
  1. TOVIAZ [Suspect]
     Dosage: 8MG ONCE A DAY AND 4MG ONCE A DAY ON ALTERNATE DAYS

REACTIONS (1)
  - WRONG TECHNIQUE IN DRUG USAGE PROCESS [None]
